FAERS Safety Report 12986416 (Version 1)
Quarter: 2016Q4

REPORT INFORMATION
  Report Type: Spontaneous
  Country: US (occurrence: US)
  Receive Date: 20161129
  Receipt Date: 20161129
  Transmission Date: 20170207
  Serious: No
  Sender: FDA-Public Use
  Company Number: None

PATIENT
  Age: 39 Year
  Sex: Male

DRUGS (2)
  1. TASIGNA [Suspect]
     Active Substance: NILOTINIB
     Indication: CHRONIC MYELOID LEUKAEMIA
     Dosage: 200 MG CAPSULES ONCE DAILY
     Route: 048
     Dates: start: 20160719
  2. GLEEVEC [Concomitant]
     Active Substance: IMATINIB MESYLATE

REACTIONS (3)
  - Hyperhidrosis [None]
  - Flushing [None]
  - Hot flush [None]

NARRATIVE: CASE EVENT DATE: 20161115
